FAERS Safety Report 25980930 (Version 1)
Quarter: 2025Q4

REPORT INFORMATION
  Report Type: Spontaneous
  Country: US (occurrence: US)
  Receive Date: 20251030
  Receipt Date: 20251030
  Transmission Date: 20260118
  Serious: Yes (Life-Threatening, Hospitalization, Other)
  Sender: B. BRAUN MEDICAL INC.
  Company Number: US-B. Braun Medical Inc.-US-BBM-202504196

PATIENT
  Sex: Male

DRUGS (2)
  1. ACETAMINOPHEN [Suspect]
     Active Substance: ACETAMINOPHEN
     Indication: Suicide attempt
     Dosage: PATIENT INGESTED ONE HUNDRED TABLETS OF EXTENDED-RELEASE APAP.
  2. APIXABAN [Concomitant]
     Active Substance: APIXABAN
     Indication: Pulmonary embolism

REACTIONS (4)
  - Encephalopathy [Recovered/Resolved]
  - Metabolic acidosis [Recovered/Resolved]
  - Hepatotoxicity [Recovered/Resolved]
  - Intentional overdose [Recovered/Resolved]
